FAERS Safety Report 6706009-7 (Version None)
Quarter: 2010Q2

REPORT INFORMATION
  Report Type: 
  Country: None (occurrence: None)
  Receive Date: 20100429
  Receipt Date: 20100420
  Transmission Date: 20101027
  Serious: Yes (Other)
  Sender: FDA-Public Use
  Company Number: 1000013300

PATIENT
  Age: 88 Year
  Sex: Female

DRUGS (3)
  1. THYROID TAB [Suspect]
     Indication: HYPOTHYROIDISM
     Dosage: 75 MG (75MG, 1 IN 1D) ORAL
     Route: 048
     Dates: start: 19670101
  2. VASOTEC (5MILLIGRAM, TABLETS) [Concomitant]
  3. BETA BLOCKERS (NOS) (TABLETS) [Concomitant]

REACTIONS (3)
  - DERMATITIS ALLERGIC [None]
  - HERPES ZOSTER [None]
  - MYOCARDIAL INFARCTION [None]
